FAERS Safety Report 8250492-5 (Version None)
Quarter: 2012Q2

REPORT INFORMATION
  Report Type: 
  Country: None (occurrence: None)
  Receive Date: 20120402
  Receipt Date: 20120402
  Transmission Date: 20120825
  Serious: Yes (Death, Life-Threatening, Hospitalization, Congenital Anomaly, Other)
  Sender: FDA-Public Use
  Company Number: None

PATIENT
  Age: 53 Year
  Sex: Female
  Weight: 63.502 kg

DRUGS (5)
  1. CITALOPRAM HYDROBROMIDE [Suspect]
     Indication: DEPRESSION
     Dosage: 1 TABLET
     Dates: start: 20110701, end: 20120330
  2. CITALOPRAM HYDROBROMIDE [Suspect]
     Indication: ANXIETY
     Dosage: 1 TABLET
     Dates: start: 20110701, end: 20120330
  3. CELEXA [Concomitant]
  4. LAMOTRIGINE [Concomitant]
  5. XANAX [Concomitant]

REACTIONS (7)
  - ANHIDROSIS [None]
  - BLOOD POTASSIUM DECREASED [None]
  - HYPOTENSION [None]
  - BONE PAIN [None]
  - HEART RATE DECREASED [None]
  - SOMNOLENCE [None]
  - UNEVALUABLE EVENT [None]
